FAERS Safety Report 12997683 (Version 1)
Quarter: 2016Q4

REPORT INFORMATION
  Report Type: Spontaneous
  Country: US (occurrence: US)
  Receive Date: 20161205
  Receipt Date: 20161205
  Transmission Date: 20170207
  Serious: No
  Sender: FDA-Public Use
  Company Number: US-WARNER CHILCOTT, LLC-1060389

PATIENT
  Sex: Female

DRUGS (1)
  1. LO LOESTRIN FE [Suspect]
     Active Substance: ETHINYL ESTRADIOL\NORETHINDRONE ACETATE
     Route: 048

REACTIONS (7)
  - Nausea [Unknown]
  - Migraine [Unknown]
  - Menorrhagia [Unknown]
  - Menstruation irregular [Unknown]
  - Metrorrhagia [Unknown]
  - Abdominal distension [Unknown]
  - Intentional product misuse [Unknown]
